FAERS Safety Report 15205908 (Version 3)
Quarter: 2021Q1

REPORT INFORMATION
  Report Type: Spontaneous
  Country: PL (occurrence: PL)
  Receive Date: 20180727
  Receipt Date: 20210330
  Transmission Date: 20210419
  Serious: Yes (Other)
  Sender: FDA-Public Use
  Company Number: PL-AUROBINDO-AUR-APL-2018-037405

PATIENT
  Age: 65 Year
  Sex: Female

DRUGS (39)
  1. ATORVASTATIN [Interacting]
     Active Substance: ATORVASTATIN
     Indication: HYPERTENSION
  2. AMLODIPINE [Suspect]
     Active Substance: AMLODIPINE BESYLATE
     Indication: ARRHYTHMIA SUPRAVENTRICULAR
     Dosage: 5 MILLIGRAM, DAILY
     Route: 065
  3. AMLODIPINE [Interacting]
     Active Substance: AMLODIPINE BESYLATE
     Indication: HYPERLIPIDAEMIA
  4. LEVOMEPROMAZINE [Suspect]
     Active Substance: LEVOMEPROMAZINE
     Indication: DEPRESSION
  5. ENALAPRIL;HYDROCHLOROTHIAZIDE [Suspect]
     Active Substance: ENALAPRIL\HYDROCHLOROTHIAZIDE
     Indication: HYPERTENSION
  6. SERTRALINE [Suspect]
     Active Substance: SERTRALINE HYDROCHLORIDE
     Indication: ANTIDEPRESSANT THERAPY
  7. ACETYLSALICYLIC ACID [Interacting]
     Active Substance: ASPIRIN
     Indication: HYPERLIPIDAEMIA
  8. SULPIRIDE ADAMANTANECARBOXYLATE [Interacting]
     Active Substance: SULPIRIDE ADAMANTANECARBOXYLATE
     Indication: DEPRESSION
     Dosage: 150 MILLIGRAM, DAILY
     Route: 065
  9. PROPAFENONE HYDROCHLORIDE. [Suspect]
     Active Substance: PROPAFENONE HYDROCHLORIDE
     Indication: ARRHYTHMIA SUPRAVENTRICULAR
     Dosage: 150 MILLIGRAM, ONCE A DAY
     Route: 065
  10. AMITRIPTYLINE [Suspect]
     Active Substance: AMITRIPTYLINE
     Indication: DEPRESSION
     Dosage: 225 MILLIGRAM, DAILY
     Route: 065
  11. CANDESARTAN CILEXETIL AND HYDROCHLOROTHIAZIDE [Interacting]
     Active Substance: CANDESARTAN CILEXETIL\HYDROCHLOROTHIAZIDE
     Indication: HYPERTENSION
     Dosage: 16 MG + 12.5 MG DAILY
     Route: 065
  12. VINPOCETINE [Interacting]
     Active Substance: VINPOCETINE
     Indication: DEPRESSION
     Dosage: 15 MILLIGRAM, DAILY
     Route: 065
  13. ENALAPRIL;HYDROCHLOROTHIAZIDE [Suspect]
     Active Substance: ENALAPRIL\HYDROCHLOROTHIAZIDE
     Indication: ARRHYTHMIA SUPRAVENTRICULAR
     Dosage: 16+12.5 MILLIGRAM
     Route: 065
  14. ATORVASTATIN [Interacting]
     Active Substance: ATORVASTATIN
     Indication: HYPERLIPIDAEMIA
     Dosage: 20 MILLIGRAM, DAILY
     Route: 065
  15. ACETYLSALICYLIC ACID [Interacting]
     Active Substance: ASPIRIN
     Indication: HYPERTENSION
  16. TORASEMIDE [Concomitant]
     Active Substance: TORSEMIDE
     Indication: HYPERTENSION
     Dosage: UNK
     Route: 065
  17. PREGABALIN. [Concomitant]
     Active Substance: PREGABALIN
     Indication: PRODUCT USED FOR UNKNOWN INDICATION
     Dosage: UNK
     Route: 065
  18. ACETYLSALICYLIC ACID [Interacting]
     Active Substance: ASPIRIN
     Indication: HYPOTENSION
  19. LANSOPRAZOLE. [Interacting]
     Active Substance: LANSOPRAZOLE
     Indication: HYPOTENSION
     Dosage: 15 MILLIGRAM, DAILY
     Route: 065
  20. LANSOPRAZOLE. [Interacting]
     Active Substance: LANSOPRAZOLE
     Indication: HYPERTENSION
  21. PERAZINE [Suspect]
     Active Substance: PERAZINE
     Indication: DEPRESSION
     Dosage: 75 MILLIGRAM, DAILY
     Route: 065
  22. SULPIRIDE ADAMANTANECARBOXYLATE [Interacting]
     Active Substance: SULPIRIDE ADAMANTANECARBOXYLATE
     Dosage: 50 MILLIGRAM, DAILY
     Route: 065
  23. SULPIRIDE ADAMANTANECARBOXYLATE [Interacting]
     Active Substance: SULPIRIDE ADAMANTANECARBOXYLATE
     Dosage: 10 MILLIGRAM, ONCE A DAY
     Route: 065
  24. PROPAFENONE HYDROCHLORIDE. [Suspect]
     Active Substance: PROPAFENONE HYDROCHLORIDE
     Indication: HYPERTENSION
  25. LEVOMEPROMAZINE [Suspect]
     Active Substance: LEVOMEPROMAZINE
     Indication: DEPRESSION
     Dosage: 50 MILLIGRAM, ONCE A DAY AT BEDTIME
     Route: 065
  26. ENALAPRIL;HYDROCHLOROTHIAZIDE [Suspect]
     Active Substance: ENALAPRIL\HYDROCHLOROTHIAZIDE
     Indication: HYPERLIPIDAEMIA
  27. LISINOPRIL. [Concomitant]
     Active Substance: LISINOPRIL
     Indication: HYPERTENSION
     Dosage: UNK
     Route: 065
  28. LAMOTRIGINE. [Interacting]
     Active Substance: LAMOTRIGINE
     Indication: DEPRESSION
     Dosage: 150 MILLIGRAM, DAILY
     Route: 065
  29. SERTRALINE [Suspect]
     Active Substance: SERTRALINE HYDROCHLORIDE
     Indication: DEPRESSION
     Dosage: 100 MILLIGRAM, DAILY (100 MG IN THE MORNING)
     Route: 065
  30. ACETYLSALICYLIC ACID [Interacting]
     Active Substance: ASPIRIN
     Indication: ARRHYTHMIA
     Dosage: 75 MILLIGRAM, DAILY
     Route: 065
  31. CANDESARTAN CILEXETIL AND HYDROCHLOROTHIAZIDE [Interacting]
     Active Substance: CANDESARTAN CILEXETIL\HYDROCHLOROTHIAZIDE
     Dosage: 1 DOSAGE FORM, ONCE A DAY
     Route: 065
  32. AMLODIPINE [Interacting]
     Active Substance: AMLODIPINE BESYLATE
     Indication: HYPERTENSION
  33. BUSPIRONE HYDROCHLORIDE. [Interacting]
     Active Substance: BUSPIRONE HYDROCHLORIDE
     Indication: DEPRESSION
     Dosage: 10 MILLIGRAM, DAILY
     Route: 065
  34. PROPAFENONE HYDROCHLORIDE. [Suspect]
     Active Substance: PROPAFENONE HYDROCHLORIDE
     Indication: ARRHYTHMIA
     Dosage: 450 MILLIGRAM, DAILY
     Route: 065
  35. PERAZINE [Suspect]
     Active Substance: PERAZINE
     Indication: DEPRESSION
  36. ATORVASTATIN [Interacting]
     Active Substance: ATORVASTATIN
     Indication: ARRHYTHMIA SUPRAVENTRICULAR
  37. PROPAFENONE HYDROCHLORIDE. [Suspect]
     Active Substance: PROPAFENONE HYDROCHLORIDE
     Indication: HYPERLIPIDAEMIA
  38. LANSOPRAZOLE. [Interacting]
     Active Substance: LANSOPRAZOLE
     Indication: HYPERLIPIDAEMIA
  39. LANSOPRAZOLE. [Interacting]
     Active Substance: LANSOPRAZOLE
     Indication: ARRHYTHMIA SUPRAVENTRICULAR

REACTIONS (28)
  - Depression [Recovering/Resolving]
  - Amnesia [Recovering/Resolving]
  - Psychomotor retardation [Recovering/Resolving]
  - Headache [Unknown]
  - Anxiety [Recovered/Resolved]
  - Fatigue [Recovered/Resolved]
  - Tension [Unknown]
  - Fall [Recovering/Resolving]
  - Extrapyramidal disorder [Recovered/Resolved]
  - Dizziness [Recovered/Resolved]
  - Insomnia [Recovering/Resolving]
  - Disturbance in attention [Recovering/Resolving]
  - Drug interaction [Recovering/Resolving]
  - Nervous system disorder [Recovered/Resolved]
  - Mental disorder [Recovering/Resolving]
  - Depressed mood [Recovering/Resolving]
  - Overweight [Unknown]
  - Flat affect [Recovering/Resolving]
  - Joint swelling [Unknown]
  - Somnolence [Recovered/Resolved]
  - Anhedonia [Recovered/Resolved]
  - Drug ineffective [Recovered/Resolved]
  - Bradykinesia [Recovered/Resolved]
  - Sleep disorder [Recovering/Resolving]
  - Cognitive disorder [Recovered/Resolved]
  - Balance disorder [Recovered/Resolved]
  - Sleep deficit [Recovered/Resolved]
  - Emotional disorder [Recovering/Resolving]
